FAERS Safety Report 17425981 (Version 1)
Quarter: 2020Q1

REPORT INFORMATION
  Report Type: Spontaneous
  Country: US (occurrence: US)
  Receive Date: 20200217
  Receipt Date: 20200217
  Transmission Date: 20200409
  Serious: Yes (Hospitalization)
  Sender: FDA-Public Use
  Company Number: US-BAUSCH-BL-2020-003683

PATIENT
  Age: 80 Year
  Sex: Male

DRUGS (5)
  1. ACYCLOVIR. [Suspect]
     Active Substance: ACYCLOVIR
     Dosage: AGAIN RESUMNED ON AN UNKNOWN DATE
     Route: 042
  2. ACYCLOVIR. [Suspect]
     Active Substance: ACYCLOVIR
     Indication: HERPES ZOSTER
     Dosage: START AND STOP ON AN UNKNOWN DATE
     Route: 042
  3. ACYCLOVIR. [Suspect]
     Active Substance: ACYCLOVIR
     Indication: HERPES ZOSTER
     Route: 048
  4. CLINDAMYCIN. [Concomitant]
     Active Substance: CLINDAMYCIN
     Indication: IMPETIGO
     Route: 048
  5. MUPIROCIN. [Concomitant]
     Active Substance: MUPIROCIN
     Indication: IMPETIGO
     Dosage: FOR LOCAL APPLICATION TO THE SKIN LESIONS.
     Route: 061

REACTIONS (1)
  - Neurotoxicity [Recovered/Resolved]
